FAERS Safety Report 10027123 (Version 2)
Quarter: 2014Q1

REPORT INFORMATION
  Report Type: Spontaneous
  Country: US (occurrence: US)
  Receive Date: 20140321
  Receipt Date: 20140321
  Transmission Date: 20141002
  Serious: No
  Sender: FDA-Public Use
  Company Number: US-MYLANLABS-2013S1016056

PATIENT
  Age: 69 Year
  Sex: Female

DRUGS (7)
  1. ESTRADIOL TRANSDERMAL SYSTEM, USP [Suspect]
     Indication: HORMONE REPLACEMENT THERAPY
     Dosage: CHANGES Q WEEK
     Route: 062
     Dates: start: 201307
  2. BYSTOLIC [Concomitant]
  3. BENICAR [Concomitant]
  4. GLUCOPHAGE [Concomitant]
  5. NEXIUM [Concomitant]
  6. ASA [Concomitant]
  7. VITAMIN E [Concomitant]

REACTIONS (1)
  - Application site exfoliation [Recovered/Resolved]
